FAERS Safety Report 6262399-3 (Version None)
Quarter: 2009Q3

REPORT INFORMATION
  Report Type: 
  Country: None (occurrence: None)
  Receive Date: 20090709
  Receipt Date: 20090701
  Transmission Date: 20100115
  Serious: Yes (Other)
  Sender: FDA-Public Use
  Company Number: SE-JNJFOC-20090700228

PATIENT
  Age: 42 Year
  Sex: Female

DRUGS (4)
  1. CONCERTA [Suspect]
     Indication: DRUG USE FOR UNKNOWN INDICATION
     Route: 048
  2. EFFEXOR [Concomitant]
     Route: 065
  3. PROMETHAZINE HCL [Concomitant]
     Route: 065
  4. PROPAVAN [Concomitant]
     Route: 048

REACTIONS (1)
  - DIABETES MELLITUS [None]
